FAERS Safety Report 4622349-X (Version None)
Quarter: 2005Q1

REPORT INFORMATION
  Report Type: 
  Country: None (occurrence: None)
  Receive Date: 20050325
  Receipt Date: 20050325
  Transmission Date: 20050727
  Serious: Yes (Other)
  Sender: FDA-Public Use
  Company Number: None

PATIENT
  Sex: Female
  Weight: 55 kg

DRUGS (2)
  1. CISPLATIN [Suspect]
     Dosage: 92MGM
     Dates: start: 20050209
  2. ETOPOSIDE [Suspect]
     Dosage: 185 MGM
     Dates: start: 20050209

REACTIONS (1)
  - NEUTROPENIA [None]
